FAERS Safety Report 10836960 (Version 1)
Quarter: 2015Q1

REPORT INFORMATION
  Report Type: Spontaneous
  Country: CH (occurrence: None)
  Receive Date: 20150218
  Receipt Date: 20150218
  Transmission Date: 20150721
  Serious: Yes (Death, Other)
  Sender: FDA-Public Use
  Company Number: ADR-2014-02422

PATIENT
  Age: 29 Year
  Sex: Male

DRUGS (6)
  1. MIDAZOLAM (INTRAVENOUS) [Suspect]
     Active Substance: MIDAZOLAM HYDROCHLORIDE
     Indication: STATUS EPILEPTICUS
  2. LEVETIRACETAM. [Suspect]
     Active Substance: LEVETIRACETAM
     Route: 042
  3. VALPROIC ACID. [Suspect]
     Active Substance: VALPROIC ACID
     Route: 042
  4. MORPHINE HYDROCHLORIDE [Suspect]
     Active Substance: MORPHINE HYDROCHLORIDE
     Route: 058
  5. BACLOFEN. [Suspect]
     Active Substance: BACLOFEN
     Indication: STATUS EPILEPTICUS
  6. GLYCOPYRROLATE. [Suspect]
     Active Substance: GLYCOPYRROLATE
     Route: 058

REACTIONS (3)
  - No therapeutic response [None]
  - Psychomotor hyperactivity [None]
  - Increased upper airway secretion [None]

NARRATIVE: CASE EVENT DATE: 20140915
